FAERS Safety Report 13907201 (Version 1)
Quarter: 2017Q3

REPORT INFORMATION
  Report Type: Spontaneous
  Country: US (occurrence: US)
  Receive Date: 20170825
  Receipt Date: 20170825
  Transmission Date: 20171127
  Serious: No
  Sender: FDA-Public Use
  Company Number: US-ROCHE-1354391

PATIENT
  Age: 11 Year
  Sex: Female

DRUGS (2)
  1. SYNTHROID [Concomitant]
     Active Substance: LEVOTHYROXINE SODIUM
  2. NUTROPIN [Suspect]
     Active Substance: SOMATROPIN
     Indication: GROWTH HORMONE DEFICIENCY
     Route: 065
     Dates: start: 20140219

REACTIONS (2)
  - Haemorrhage [Unknown]
  - Contusion [Unknown]

NARRATIVE: CASE EVENT DATE: 20140220
